FAERS Safety Report 8000552-9 (Version None)
Quarter: 2011Q4

REPORT INFORMATION
  Report Type: 
  Country: None (occurrence: None)
  Receive Date: 20111222
  Receipt Date: 20111216
  Transmission Date: 20120403
  Serious: Yes (Hospitalization)
  Sender: FDA-Public Use
  Company Number: US-COVIDIEN/TYCO HEALTHCARE/MALLINCKRODT-T201102932

PATIENT
  Age: 3 Year
  Sex: Male

DRUGS (3)
  1. FLUOXETINE [Suspect]
     Dosage: INGESTED UP TO 12 TABS; 12.6 MG/KG
     Route: 048
  2. CLONIDINE [Concomitant]
     Dosage: UNK
  3. METHYLPHENIDATE [Concomitant]
     Dosage: UNK

REACTIONS (2)
  - INAPPROPRIATE ANTIDIURETIC HORMONE SECRETION [None]
  - ACCIDENTAL DRUG INTAKE BY CHILD [None]
